FAERS Safety Report 6319218-6 (Version None)
Quarter: 2009Q3

REPORT INFORMATION
  Report Type: 
  Country: None (occurrence: None)
  Receive Date: 20090821
  Receipt Date: 20080813
  Transmission Date: 20100115
  Serious: No
  Sender: FDA-Public Use
  Company Number: US-ABBOTT-08P-163-0470819-00

PATIENT
  Sex: Male
  Weight: 88 kg

DRUGS (54)
  1. NIASPAN [Suspect]
     Indication: LOW DENSITY LIPOPROTEIN INCREASED
  2. NIASPAN [Suspect]
     Indication: HIGH DENSITY LIPOPROTEIN DECREASED
  3. ROSUVASTATIN [Concomitant]
     Indication: DRUG USE FOR UNKNOWN INDICATION
     Dosage: 1, DAILY
  4. LOVAZA [Concomitant]
     Indication: DRUG USE FOR UNKNOWN INDICATION
     Dosage: TWICE DAILY, BREAKFAST AND DINNER
     Dates: end: 20080601
  5. WARFARIN SODIUM [Concomitant]
     Indication: DRUG USE FOR UNKNOWN INDICATION
     Dates: end: 20080601
  6. WARFARIN SODIUM [Concomitant]
     Dosage: ADJUSTED WEEKLY OR BI-WEEKLY, ABOUT 24MG
  7. WARFARIN SODIUM [Concomitant]
     Dates: start: 20080418, end: 20080421
  8. SOTALOL HCL [Concomitant]
     Indication: DRUG USE FOR UNKNOWN INDICATION
     Dosage: 1, TWICE DAILY, AROUND 9:30 AM + PM
  9. TRICOR [Concomitant]
     Indication: BLOOD TRIGLYCERIDES
     Dosage: 1, DAILY IN THE AM
  10. SULFASALAZINE [Concomitant]
     Indication: DRUG USE FOR UNKNOWN INDICATION
     Dosage: 2, DAILY
  11. LOPERAMIDE [Concomitant]
     Indication: DIARRHOEA
     Dosage: 1-2, AS NEEDED
  12. LOPERAMIDE HYDROCHLORIDE [Concomitant]
     Indication: DIARRHOEA
     Dosage: 1-2, AS NEEDED
  13. CIPRO [Concomitant]
     Indication: DRUG USE FOR UNKNOWN INDICATION
     Dosage: 1, TWICE DAILY
  14. MERCAPTOPURINE [Concomitant]
     Indication: DRUG USE FOR UNKNOWN INDICATION
     Dates: end: 20080218
  15. MERCAPTOPURINE [Concomitant]
     Dates: start: 20080218, end: 20080421
  16. MERCAPTOPURINE [Concomitant]
     Dates: start: 20080421, end: 20080429
  17. MERCAPTOPURINE [Concomitant]
     Dates: start: 20080429
  18. NEXIUM [Concomitant]
     Indication: DRUG USE FOR UNKNOWN INDICATION
     Dosage: 1, DAILY IN THE AM
  19. DIMETICONE, ACTIVATED [Concomitant]
     Indication: DRUG USE FOR UNKNOWN INDICATION
  20. WELLBUTRIN [Concomitant]
     Indication: DRUG USE FOR UNKNOWN INDICATION
     Dosage: 1, TWICE DAILY, AM + 6PM
  21. DEPAKOTE [Concomitant]
     Indication: DRUG USE FOR UNKNOWN INDICATION
     Dosage: 2 IN THE AM
  22. FLUOXETINE [Concomitant]
     Indication: DRUG USE FOR UNKNOWN INDICATION
     Dosage: IN THE AM
  23. SEROQUEL [Concomitant]
     Indication: INSOMNIA
     Dosage: 2, ONE HOUR BEFORE BED
  24. AMBIEN [Concomitant]
     Indication: INSOMNIA
  25. ATIVAN [Concomitant]
     Indication: INSOMNIA
  26. ZYRTEC [Concomitant]
     Indication: DRUG USE FOR UNKNOWN INDICATION
     Dosage: FOR 10 DAYS, WHEN NEEDED
  27. ALLEGRA [Concomitant]
     Indication: DRUG USE FOR UNKNOWN INDICATION
     Dosage: FOR 10 DAYS, WHEN NEEDED
  28. SINGULAIR [Concomitant]
     Indication: DRUG USE FOR UNKNOWN INDICATION
     Dosage: 1, DAILY IN THE AFTERNOON
  29. SECONASE AQ NASAL SPRAY 42 MCG [Concomitant]
     Indication: DRUG USE FOR UNKNOWN INDICATION
     Dosage: 2 SPRAYS TO BOTH NOSTRILS IN PM
  30. SODIUM CHLORIDE [Concomitant]
     Indication: DRUG USE FOR UNKNOWN INDICATION
  31. PRO AIR 108MCG [Concomitant]
     Indication: DRUG USE FOR UNKNOWN INDICATION
  32. B-I PAP MACHINE [Concomitant]
     Indication: SLEEP APNOEA SYNDROME
     Dosage: NIGHTLY
  33. XALATAN 0.005% EYE DROPS [Concomitant]
     Indication: DRUG USE FOR UNKNOWN INDICATION
     Dosage: 1 DROP IN EACH EYE
  34. EXTRA STRENGHT ASPIRIN [Concomitant]
     Indication: BACK PAIN
     Dosage: 500 MG, 2, AS NEEDED
  35. EXTRA STRENGHT ASPIRIN [Concomitant]
     Indication: NECK PAIN
  36. ZEASORB AF POWDER [Concomitant]
     Indication: HYPERHIDROSIS
  37. KETOCONAZOLE [Concomitant]
     Indication: DRUG USE FOR UNKNOWN INDICATION
  38. KETOCONAZOLE [Concomitant]
     Indication: DRUG USE FOR UNKNOWN INDICATION
  39. BREVOXYL-8 CREAMY WASH [Concomitant]
     Indication: ACNE
  40. CLINDAMYCIN 1% [Concomitant]
     Indication: ACNE
  41. NORITATE [Concomitant]
     Indication: ROSACEA
  42. LIDODERM 1% [Concomitant]
     Indication: ARTHRALGIA
  43. CORTIZONE 2 1/2 % CREAM [Concomitant]
     Indication: ACNE
  44. ASMANEX TWISTHALER [Concomitant]
     Indication: DRUG USE FOR UNKNOWN INDICATION
     Dosage: 2 INHALATIONS, DAILY
     Dates: end: 20080715
  45. ENOXAPARIN SODIUM [Concomitant]
     Indication: DRUG USE FOR UNKNOWN INDICATION
     Dosage: 100MG/1ML SYRINGE, 1, TWICE DAILY
     Dates: start: 20080426, end: 20080508
  46. DIATZ-ZN [Concomitant]
     Indication: DRUG USE FOR UNKNOWN INDICATION
     Dates: end: 20080224
  47. DIATZ-ZN [Concomitant]
     Dosage: 1, DAILY
     Dates: start: 20080307, end: 20080421
  48. DIATZ-ZN [Concomitant]
     Dosage: 1, DAILY
     Dates: start: 20080507, end: 20080519
  49. TOPROL-XL [Concomitant]
     Indication: HYPERTENSION
     Dates: end: 20080428
  50. CHOLESTYRAMINE [Concomitant]
     Indication: DIARRHOEA
  51. QUININE 260MG [Concomitant]
     Indication: MUSCLE SPASMS
  52. ERGOCALCIFEROL [Concomitant]
     Indication: VITAMIN SUPPLEMENTATION
     Dosage: 1, TWICE DAILY
     Dates: end: 20080424
  53. ERGOCALCIFEROL [Concomitant]
     Dates: start: 20080506, end: 20080519
  54. ECOTRIN 81MG [Concomitant]
     Indication: DRUG USE FOR UNKNOWN INDICATION
     Dosage: 1, DAILY

REACTIONS (1)
  - ERYTHEMA [None]
